FAERS Safety Report 9500267 (Version 1)
Quarter: 2013Q1

REPORT INFORMATION
  Report Type: Spontaneous
  Country: US (occurrence: None)
  Receive Date: 20130118
  Receipt Date: 20130118
  Transmission Date: 20140127
  Serious: Yes (Hospitalization)
  Sender: FDA-Public Use
  Company Number: A-US2012-59659

PATIENT
  Age: 70 Year
  Sex: Male

DRUGS (2)
  1. TRACLEER [Suspect]
     Route: 048
     Dates: start: 20100630
  2. ADCIRCA ( TADALAFIL) [Concomitant]

REACTIONS (1)
  - Nasopharyngitis [None]
